FAERS Safety Report 14435895 (Version 1)
Quarter: 2018Q1

REPORT INFORMATION
  Report Type: Spontaneous
  Country: US (occurrence: US)
  Receive Date: 20180125
  Receipt Date: 20180125
  Transmission Date: 20180509
  Serious: No
  Sender: FDA-Public Use
  Company Number: US-UNITED THERAPEUTICS-UNT-2017-008588

PATIENT
  Sex: Female

DRUGS (1)
  1. REMODULIN [Suspect]
     Active Substance: TREPROSTINIL
     Indication: PRODUCT USED FOR UNKNOWN INDICATION
     Dosage: 0.010 ?G/KG TO 0.020 ?G/KG (100-200 ?G/KG), CONTINUING
     Route: 058
     Dates: start: 20170228

REACTIONS (3)
  - Weight increased [Unknown]
  - Infusion site erythema [Unknown]
  - Headache [Unknown]
